FAERS Safety Report 19361537 (Version 3)
Quarter: 2021Q2

REPORT INFORMATION
  Report Type: Report from Study
  Country: None (occurrence: BE)
  Receive Date: 20210603
  Receipt Date: 20210609
  Transmission Date: 20210717
  Serious: Yes (Other)
  Sender: FDA-Public Use
  Company Number: BE-ABBVIE-21K-013-3929772-00

PATIENT
  Sex: Male
  Weight: 75 kg

DRUGS (12)
  1. STALEVO [Concomitant]
     Active Substance: CARBIDOPA\ENTACAPONE\LEVODOPA
     Indication: PRODUCT USED FOR UNKNOWN INDICATION
     Dosage: AT 7, 10, 13, 16 AND 19.00 HOURS
  2. DUODOPA [Suspect]
     Active Substance: CARBIDOPA\LEVODOPA
     Dosage: MD 2.0 ML; CD 2.1 ML/HR DURING 16 HOURS; ED 1.0 ML
     Route: 050
     Dates: start: 20210205, end: 202105
  3. MIRAPEXIN [Concomitant]
     Active Substance: PRAMIPEXOLE
     Indication: PRODUCT USED FOR UNKNOWN INDICATION
     Dosage: AT 7.00 HOURS
  4. DUODOPA [Suspect]
     Active Substance: CARBIDOPA\LEVODOPA
     Dosage: MD 2.0 ML; CD 2.1 ML/HR DURING 16 HOURS; ED 1.0 ML
     Route: 050
     Dates: start: 202105
  5. CARDIOASPIRINE [Concomitant]
     Active Substance: ASPIRIN
     Indication: PRODUCT USED FOR UNKNOWN INDICATION
     Dosage: AT 12.00 HOURS
  6. ESCITALOPRAM [Concomitant]
     Active Substance: ESCITALOPRAM OXALATE
     Indication: PRODUCT USED FOR UNKNOWN INDICATION
  7. DUODOPA [Suspect]
     Active Substance: CARBIDOPA\LEVODOPA
     Indication: PARKINSON^S DISEASE
     Route: 050
     Dates: start: 20151207
  8. OXYBUTYNIN. [Concomitant]
     Active Substance: OXYBUTYNIN CHLORIDE
     Indication: PRODUCT USED FOR UNKNOWN INDICATION
     Dosage: AT 7.00 AND 19.00 HOURS 1/2
  9. AZILECT [Concomitant]
     Active Substance: RASAGILINE MESYLATE
     Dosage: AT 8.00 HOURS
  10. VITAMIN B12 [Concomitant]
     Active Substance: CYANOCOBALAMIN
     Indication: PRODUCT USED FOR UNKNOWN INDICATION
     Dosage: AT 12.00 HOURS
  11. AZILECT [Concomitant]
     Active Substance: RASAGILINE MESYLATE
     Indication: PRODUCT USED FOR UNKNOWN INDICATION
     Dosage: AT 7.00 HOURS
  12. ATACAND [Concomitant]
     Active Substance: CANDESARTAN CILEXETIL
     Indication: PRODUCT USED FOR UNKNOWN INDICATION
     Dosage: AT 12.00 HOURS

REACTIONS (7)
  - Confusional state [Unknown]
  - Medical device removal [Recovered/Resolved]
  - Mental disorder [Unknown]
  - Urinary tract infection [Unknown]
  - Device deployment issue [Unknown]
  - Dementia [Unknown]
  - Stoma site haemorrhage [Unknown]
